FAERS Safety Report 5006703-2 (Version None)
Quarter: 2006Q2

REPORT INFORMATION
  Report Type: 
  Country: None (occurrence: None)
  Receive Date: 20060519
  Receipt Date: 20051227
  Transmission Date: 20061013
  Serious: Yes (Hospitalization, Disabling)
  Sender: FDA-Public Use
  Company Number: JP-BRISTOL-MYERS SQUIBB COMPANY-13230305

PATIENT
  Age: 80 Year
  Sex: Male

DRUGS (5)
  1. TAXOL [Suspect]
     Indication: NON-SMALL CELL LUNG CANCER
     Route: 041
     Dates: start: 20050615, end: 20051206
  2. PARAPLATIN [Suspect]
     Indication: NON-SMALL CELL LUNG CANCER
     Route: 041
     Dates: start: 20050615, end: 20050823
  3. VENA [Concomitant]
     Route: 048
     Dates: start: 20050615, end: 20051206
  4. DECADRON SRC [Concomitant]
     Route: 042
     Dates: start: 20050615, end: 20051206
  5. FAMOTIDINE [Concomitant]
     Route: 042
     Dates: start: 20050615, end: 20051206

REACTIONS (1)
  - INTERSTITIAL LUNG DISEASE [None]
